FAERS Safety Report 8928900 (Version 1)
Quarter: 2012Q4

REPORT INFORMATION
  Report Type: 
  Country: SE (occurrence: SE)
  Receive Date: 20121127
  Receipt Date: 20121127
  Transmission Date: 20130627
  Serious: Yes (Disabling)
  Sender: FDA-Public Use
  Company Number: CHPA2012SE024271

PATIENT
  Sex: Female

DRUGS (1)
  1. NICOTINELL [Suspect]
     Dosage: About 10 DF, per day
     Route: 048

REACTIONS (2)
  - Joint stiffness [Unknown]
  - Trismus [None]
